FAERS Safety Report 15780443 (Version 3)
Quarter: 2019Q1

REPORT INFORMATION
  Report Type: Spontaneous
  Country: CA (occurrence: CA)
  Receive Date: 20190102
  Receipt Date: 20190123
  Transmission Date: 20190417
  Serious: Yes (Hospitalization)
  Sender: FDA-Public Use
  Company Number: CA-ROCHE-2236291

PATIENT
  Age: 45 Year
  Sex: Female

DRUGS (7)
  1. BENADRYL [Concomitant]
     Active Substance: DIPHENHYDRAMINE HYDROCHLORIDE
     Indication: PRODUCT USED FOR UNKNOWN INDICATION
     Dosage: UNK
     Route: 048
     Dates: start: 20180725
  2. PREDNISONE. [Concomitant]
     Active Substance: PREDNISONE
     Indication: PRODUCT USED FOR UNKNOWN INDICATION
     Dosage: UNK UNK, BID
     Route: 048
     Dates: start: 201805
  3. XOLAIR [Suspect]
     Active Substance: OMALIZUMAB
     Indication: CHRONIC SPONTANEOUS URTICARIA
     Route: 058
     Dates: start: 20181122
  4. PREDNISONE. [Concomitant]
     Active Substance: PREDNISONE
     Dosage: 50 MG, QD
     Route: 065
     Dates: end: 20181220
  5. REACTINE (CANADA) [Concomitant]
     Active Substance: CETIRIZINE HYDROCHLORIDE
     Indication: PRODUCT USED FOR UNKNOWN INDICATION
     Dosage: UNK
     Route: 048
     Dates: start: 20180725
  6. PREDNISONE. [Concomitant]
     Active Substance: PREDNISONE
     Dosage: 50 MG, (LAST DOSE)
     Route: 065
     Dates: end: 20181220
  7. XOLAIR [Suspect]
     Active Substance: OMALIZUMAB
     Route: 058
     Dates: start: 20181220

REACTIONS (17)
  - Pruritus [Recovered/Resolved]
  - Urticaria [Recovered/Resolved]
  - Swelling face [Recovered/Resolved]
  - Hypersensitivity [Not Recovered/Not Resolved]
  - Asthenia [Unknown]
  - Ocular hyperaemia [Not Recovered/Not Resolved]
  - Headache [Unknown]
  - Paraesthesia [Not Recovered/Not Resolved]
  - Mouth swelling [Recovered/Resolved]
  - Nasopharyngitis [Unknown]
  - Eye pruritus [Not Recovered/Not Resolved]
  - Pain [Recovering/Resolving]
  - Inflammation [Unknown]
  - Insomnia [Unknown]
  - Loss of consciousness [Recovered/Resolved]
  - Dizziness [Unknown]
  - Drug ineffective [Unknown]

NARRATIVE: CASE EVENT DATE: 20181125
